FAERS Safety Report 5661884-2 (Version None)
Quarter: 2008Q1

REPORT INFORMATION
  Report Type: 
  Country: None (occurrence: None)
  Receive Date: 20080312
  Receipt Date: 20080307
  Transmission Date: 20080703
  Serious: Yes (Other)
  Sender: FDA-Public Use
  Company Number: FR-JNJFOC-20080100529

PATIENT
  Sex: Female

DRUGS (4)
  1. RISPERDAL [Suspect]
     Indication: SCHIZOPHRENIA
     Route: 048
  2. TERALITHE LP [Suspect]
     Indication: SCHIZOAFFECTIVE DISORDER
     Route: 048
  3. VALIUM [Suspect]
     Indication: ANXIETY
     Route: 048
  4. EFFEXOR [Concomitant]
     Indication: DEPRESSION
     Route: 048

REACTIONS (2)
  - HYPOTONIC URINARY BLADDER [None]
  - URINARY INCONTINENCE [None]
